FAERS Safety Report 14288246 (Version 1)
Quarter: 2017Q4

REPORT INFORMATION
  Report Type: Spontaneous
  Country: GB (occurrence: GB)
  Receive Date: 20171214
  Receipt Date: 20171214
  Transmission Date: 20180321
  Serious: Yes (Other)
  Sender: FDA-Public Use
  Company Number: GB-TEVA-2017-GB-833210

PATIENT
  Age: 33 Month
  Sex: Female

DRUGS (1)
  1. AMOXICILLIN. [Suspect]
     Active Substance: AMOXICILLIN
     Indication: OTITIS MEDIA
     Dosage: 125MG/5ML
     Dates: start: 20171001

REACTIONS (3)
  - Accidental underdose [Unknown]
  - Drug prescribing error [Unknown]
  - Pyrexia [Unknown]

NARRATIVE: CASE EVENT DATE: 20171004
